FAERS Safety Report 13175598 (Version 3)
Quarter: 2017Q1

REPORT INFORMATION
  Report Type: Spontaneous
  Country: JP (occurrence: JP)
  Receive Date: 20170201
  Receipt Date: 20170316
  Transmission Date: 20170428
  Serious: Yes (Death, Hospitalization, Other)
  Sender: FDA-Public Use
  Company Number: JP-GILEAD-2017-0254833

PATIENT
  Age: 76 Year
  Sex: Female

DRUGS (9)
  1. HEPAACT [Concomitant]
     Indication: HEPATIC CIRRHOSIS
     Dosage: 13.5 G, UNK
     Route: 048
     Dates: start: 20161221
  2. AIMIX [Concomitant]
     Active Substance: AMLODIPINE BESYLATE\IRBESARTAN
  3. LASIX [Concomitant]
     Active Substance: FUROSEMIDE
  4. CARBOCYSTEINE [Concomitant]
     Active Substance: CARBOCYSTEINE
  5. URSO [Concomitant]
     Active Substance: URSODIOL
  6. BUFFERIN [Concomitant]
     Active Substance: ASPIRIN
  7. SELBEX [Concomitant]
     Active Substance: TEPRENONE
  8. HARVONI [Suspect]
     Active Substance: LEDIPASVIR\SOFOSBUVIR
     Indication: HEPATITIS C
     Dosage: 1 DF, QD
     Route: 048
     Dates: start: 20170105, end: 20170116
  9. LIVACT                             /00847901/ [Concomitant]
     Active Substance: ISOLEUCINE\LEUCINE\VALINE

REACTIONS (9)
  - Shock haemorrhagic [Fatal]
  - Hepatic failure [Fatal]
  - Ascites [Unknown]
  - Spinal compression fracture [Not Recovered/Not Resolved]
  - Upper gastrointestinal haemorrhage [Fatal]
  - Renal impairment [Not Recovered/Not Resolved]
  - Oesophageal varices haemorrhage [Unknown]
  - Face oedema [Not Recovered/Not Resolved]
  - Oedema peripheral [Not Recovered/Not Resolved]

NARRATIVE: CASE EVENT DATE: 20170114
